FAERS Safety Report 7715603-6 (Version None)
Quarter: 2011Q3

REPORT INFORMATION
  Report Type: 
  Country: None (occurrence: None)
  Receive Date: 20110829
  Receipt Date: 20110815
  Transmission Date: 20111222
  Serious: Yes (Disabling)
  Sender: FDA-Public Use
  Company Number: NL-CELGENEUS-114-21880-11021724

PATIENT
  Sex: Female

DRUGS (2)
  1. IMPORTAL [Concomitant]
     Route: 065
  2. REVLIMID [Suspect]
     Indication: MYELOFIBROSIS
     Dosage: 10 MILLIGRAM
     Route: 048
     Dates: start: 20101223, end: 20110111

REACTIONS (11)
  - MYALGIA [None]
  - INFLUENZA LIKE ILLNESS [None]
  - HYPERHIDROSIS [None]
  - EYE DISORDER [None]
  - FATIGUE [None]
  - EYE PAIN [None]
  - ASTHENIA [None]
  - SOMNOLENCE [None]
  - ARTHRALGIA [None]
  - GASTROINTESTINAL MOTILITY DISORDER [None]
  - DIZZINESS [None]
